FAERS Safety Report 7656894-X (Version None)
Quarter: 2011Q3

REPORT INFORMATION
  Report Type: 
  Country: None (occurrence: None)
  Receive Date: 20110801
  Receipt Date: 20110722
  Transmission Date: 20111222
  Serious: Yes (Hospitalization)
  Sender: FDA-Public Use
  Company Number: 1000022512

PATIENT
  Sex: Male

DRUGS (5)
  1. URBANYL (CLOBAZAM) (CLOBAZAM) [Concomitant]
  2. FLUOXETINE [Suspect]
  3. CITALOPRAM HYDROBROMIDE [Suspect]
  4. ALEPSAL (ALEPSAL) (ALEPSAL) [Concomitant]
  5. DI-HYDAN (PHENYTOIN) (PHENYTOIN) [Concomitant]

REACTIONS (2)
  - COMA [None]
  - MALAISE [None]
